FAERS Safety Report 8634559 (Version 2)
Quarter: 2013Q1

REPORT INFORMATION
  Report Type: Spontaneous
  Country: AU (occurrence: AU)
  Receive Date: 20120626
  Receipt Date: 20130117
  Transmission Date: 20140127
  Serious: Yes (Other)
  Sender: FDA-Public Use
  Company Number: PHHY2012AU053506

PATIENT
  Age: 64 Year
  Sex: Female

DRUGS (4)
  1. PAMIDRONATE [Suspect]
     Indication: PLASMA CELL MYELOMA
     Dosage: 90 MG, UNK
     Route: 042
  2. ZOLEDRONIC ACID [Suspect]
     Indication: PLASMA CELL MYELOMA
     Dosage: 4 MG,
     Route: 042
  3. LENALIDOMIDE [Concomitant]
     Indication: PLASMA CELL MYELOMA
     Dosage: 15 MG, DAILY
  4. DEXAMETHASONE [Concomitant]
     Indication: PLASMA CELL MYELOMA

REACTIONS (6)
  - Osteonecrosis of jaw [Recovered/Resolved]
  - Oroantral fistula [Recovered/Resolved]
  - Pain in jaw [Recovered/Resolved]
  - Exposed bone in jaw [Recovered/Resolved]
  - Tooth loss [Recovered/Resolved]
  - Fistula discharge [Recovered/Resolved]
